FAERS Safety Report 8301557-0 (Version None)
Quarter: 2012Q2

REPORT INFORMATION
  Report Type: 
  Country: None (occurrence: None)
  Receive Date: 20120420
  Receipt Date: 20120418
  Transmission Date: 20120825
  Serious: Yes (Other)
  Sender: FDA-Public Use
  Company Number: PHEH2012US003815

PATIENT
  Sex: Female

DRUGS (12)
  1. GILENYA [Suspect]
     Indication: RELAPSING-REMITTING MULTIPLE SCLEROSIS
     Dosage: 0.5 MG, QD
     Route: 048
     Dates: start: 20120124, end: 20120220
  2. LASIX [Concomitant]
  3. VICODIN [Concomitant]
  4. COPAXONE [Concomitant]
     Dosage: 1 DF, DAILY
  5. MIRAPEX [Concomitant]
     Dosage: 1 DF, QHS
     Route: 048
  6. CYMBALTA [Concomitant]
     Dosage: 1 DF, BID
     Route: 048
  7. NEURONTIN [Concomitant]
     Dosage: 1 DF, TID
     Route: 048
  8. FAMPRIDINE [Concomitant]
     Dosage: 10 MG, TID
  9. VALIUM [Concomitant]
     Indication: MUSCLE SPASMS
     Dosage: 1 DF, QHS
     Route: 048
  10. PROVENTIL-HFA [Concomitant]
  11. BACLOFEN [Concomitant]
     Dosage: 1 DF, TID
     Route: 048
  12. CALCIUM CARBONATE W/VITAMIN D NOS [Concomitant]

REACTIONS (9)
  - COUGH [None]
  - FATIGUE [None]
  - TENDONITIS [None]
  - NAUSEA [None]
  - DYSPNOEA [None]
  - PAIN IN EXTREMITY [None]
  - FASCIITIS [None]
  - HEART RATE INCREASED [None]
  - HYPERKERATOSIS [None]
